FAERS Safety Report 9448553 (Version 1)
Quarter: 2013Q3

REPORT INFORMATION
  Report Type: Spontaneous
  Country: US (occurrence: None)
  Receive Date: 20130808
  Receipt Date: 20130808
  Transmission Date: 20140515
  Serious: Yes (Hospitalization)
  Sender: FDA-Public Use
  Company Number: None

PATIENT
  Age: 53 Year
  Sex: Female

DRUGS (1)
  1. CALCIUM GLUCONATE [Suspect]
     Dosage: 2GM IN 100 ML NS INTRAVENOUS
     Dates: start: 20130726, end: 20130726

REACTIONS (3)
  - Bacterial infection [None]
  - Product contamination [None]
  - Rhodococcus infection [None]
